FAERS Safety Report 9316145 (Version 1)
Quarter: 2013Q2

REPORT INFORMATION
  Report Type: Spontaneous
  Country: FR (occurrence: FR)
  Receive Date: 20130530
  Receipt Date: 20130530
  Transmission Date: 20140414
  Serious: Yes (Hospitalization)
  Sender: FDA-Public Use
  Company Number: FR-009507513-1305FRA014188

PATIENT
  Age: 43 Year
  Sex: Male

DRUGS (2)
  1. ISENTRESS [Suspect]
     Indication: HIV INFECTION
     Route: 048
  2. TRUVADA [Concomitant]

REACTIONS (2)
  - Liver disorder [Unknown]
  - Thrombocytopenia [Unknown]
